FAERS Safety Report 23936409 (Version 2)
Quarter: 2024Q2

REPORT INFORMATION
  Report Type: Report from Study
  Country: US (occurrence: US)
  Receive Date: 20240604
  Receipt Date: 20240605
  Transmission Date: 20240716
  Serious: Yes (Other)
  Sender: FDA-Public Use
  Company Number: US-PFIZER INC-202400181805

PATIENT
  Age: 8 Year
  Sex: Female

DRUGS (2)
  1. CYTARABINE [Suspect]
     Active Substance: CYTARABINE
     Indication: Langerhans cell sarcoma
     Dosage: 100 MG/M2, CYCLIC, X 5 DAYS
  2. DABRAFENIB [Suspect]
     Active Substance: DABRAFENIB
     Indication: Langerhans cell sarcoma
     Dosage: 1.65 MG/KG, DAILY

REACTIONS (5)
  - Neuropathy peripheral [Unknown]
  - Thrombocytopenia [Unknown]
  - Myalgia [Unknown]
  - Pyrexia [Unknown]
  - Neutropenia [Unknown]
